FAERS Safety Report 5572440-9 (Version None)
Quarter: 2007Q4

REPORT INFORMATION
  Report Type: 
  Country: None (occurrence: None)
  Receive Date: 20071219
  Receipt Date: 20071204
  Transmission Date: 20080405
  Serious: Yes (Hospitalization)
  Sender: FDA-Public Use
  Company Number: S07-FRA-06346-01

PATIENT
  Age: 64 Year
  Sex: Male
  Weight: 83 kg

DRUGS (5)
  1. CITALOPRAM HYDROBROMIDE [Suspect]
     Dosage: 1 QD;PO
     Route: 048
     Dates: end: 20071120
  2. PREVISCAN(FLUINDIONE) [Suspect]
     Indication: MITRAL VALVE REPLACEMENT
     Dosage: 1.75 QD; PO
     Route: 048
  3. DIGOXIN [Suspect]
     Dosage: 1 QD;PO
     Route: 048
  4. FLECAINIDE ACETATE [Concomitant]
  5. VALSARTAN AND HYDROCHLOROTHIAZIDE [Concomitant]

REACTIONS (4)
  - DRUG INTERACTION [None]
  - INTERNATIONAL NORMALISED RATIO INCREASED [None]
  - MUSCLE HAEMORRHAGE [None]
  - OVERDOSE [None]
